FAERS Safety Report 6157468-2 (Version None)
Quarter: 2009Q2

REPORT INFORMATION
  Report Type: 
  Country: None (occurrence: None)
  Receive Date: 20090416
  Receipt Date: 20090410
  Transmission Date: 20091009
  Serious: Yes (Other)
  Sender: FDA-Public Use
  Company Number: PHHY2008JP20001

PATIENT
  Sex: Female

DRUGS (2)
  1. LAMISIL [Suspect]
     Dosage: 125 MG
     Route: 048
     Dates: start: 20080604, end: 20080802
  2. LAMISIL [Suspect]
     Indication: TRICHOPHYTOSIS

REACTIONS (5)
  - BLOOD ALKALINE PHOSPHATASE INCREASED [None]
  - GAMMA-GLUTAMYLTRANSFERASE INCREASED [None]
  - HEPATIC FUNCTION ABNORMAL [None]
  - PLATELET COUNT DECREASED [None]
  - WHITE BLOOD CELL COUNT DECREASED [None]
